FAERS Safety Report 12830046 (Version 1)
Quarter: 2016Q4

REPORT INFORMATION
  Report Type: Spontaneous
  Country: US (occurrence: US)
  Receive Date: 20161007
  Receipt Date: 20161007
  Transmission Date: 20170207
  Serious: No
  Sender: FDA-Public Use
  Company Number: US-SA-2016SA144194

PATIENT
  Age: 49 Year
  Sex: Female

DRUGS (11)
  1. DULOXETINE. [Concomitant]
     Active Substance: DULOXETINE
  2. LOSARTAN. [Concomitant]
     Active Substance: LOSARTAN
     Dosage: POT TAB
  3. TAMSULOSIN [Concomitant]
     Active Substance: TAMSULOSIN
  4. PROPRANOLOL [Concomitant]
     Active Substance: PROPRANOLOL\PROPRANOLOL HYDROCHLORIDE
  5. LORAZEPAM. [Concomitant]
     Active Substance: LORAZEPAM
  6. ALENDRONATE [Concomitant]
     Active Substance: ALENDRONATE SODIUM
  7. METHYLPHENIDATE. [Concomitant]
     Active Substance: METHYLPHENIDATE
  8. BACLOFEN. [Concomitant]
     Active Substance: BACLOFEN
  9. AUBAGIO [Suspect]
     Active Substance: TERIFLUNOMIDE
     Indication: MULTIPLE SCLEROSIS
     Route: 048
     Dates: start: 201606
  10. SMZ-TMP [Concomitant]
     Active Substance: SULFAMETHOXAZOLE\TRIMETHOPRIM
  11. VESICARE [Concomitant]
     Active Substance: SOLIFENACIN SUCCINATE

REACTIONS (1)
  - Hypoaesthesia [Unknown]

NARRATIVE: CASE EVENT DATE: 2016
